FAERS Safety Report 13078555 (Version 1)
Quarter: 2017Q1

REPORT INFORMATION
  Report Type: Spontaneous
  Country: GB (occurrence: GB)
  Receive Date: 20170102
  Receipt Date: 20170102
  Transmission Date: 20170428
  Serious: Yes (Disabling, Other)
  Sender: FDA-Public Use
  Company Number: GB-TEVA-724367ACC

PATIENT
  Age: 55 Year
  Sex: Female
  Weight: 59.87 kg

DRUGS (5)
  1. BUCCASTEM [Concomitant]
     Indication: MIGRAINE
  2. PROPRANOLOL [Concomitant]
     Active Substance: PROPRANOLOL HYDROCHLORIDE
     Indication: MIGRAINE PROPHYLAXIS
  3. TOPIRAMATE. [Suspect]
     Active Substance: TOPIRAMATE
     Indication: MIGRAINE PROPHYLAXIS
     Route: 048
  4. TOPIRAMATE. [Suspect]
     Active Substance: TOPIRAMATE
     Indication: MIGRAINE PROPHYLAXIS
     Dosage: 100 MILLIGRAM DAILY;
     Route: 048
  5. MAXALT [Concomitant]
     Active Substance: RIZATRIPTAN BENZOATE
     Indication: MIGRAINE

REACTIONS (21)
  - Palpitations [Recovered/Resolved]
  - Nausea [Recovered/Resolved]
  - Epistaxis [Recovered/Resolved]
  - Skin odour abnormal [Recovered/Resolved]
  - Anger [Recovered/Resolved with Sequelae]
  - Suicidal ideation [Recovered/Resolved with Sequelae]
  - Disturbance in attention [Recovering/Resolving]
  - Nasal discharge discolouration [Recovering/Resolving]
  - Suspiciousness [Recovered/Resolved with Sequelae]
  - Insomnia [Recovered/Resolved]
  - Hypogeusia [Not Recovered/Not Resolved]
  - Gingival disorder [Recovered/Resolved]
  - Feeling hot [Recovered/Resolved]
  - Paraesthesia [Recovered/Resolved]
  - Depression [Recovering/Resolving]
  - Tinnitus [Not Recovered/Not Resolved]
  - Ear discomfort [Recovered/Resolved]
  - Eructation [Recovered/Resolved]
  - Bradyphrenia [Not Recovered/Not Resolved]
  - Hypoacusis [Recovering/Resolving]
  - Dysgeusia [Recovered/Resolved]
